FAERS Safety Report 14816235 (Version 1)
Quarter: 2018Q2

REPORT INFORMATION
  Report Type: Spontaneous
  Country: US (occurrence: US)
  Receive Date: 20180426
  Receipt Date: 20180426
  Transmission Date: 20180711
  Serious: Yes (Congenital Anomaly)
  Sender: FDA-Public Use
  Company Number: US-BIOMARINAP-US-2018-117919

PATIENT
  Age: 0 Day
  Sex: Male
  Weight: 2.18 kg

DRUGS (1)
  1. KUVAN [Suspect]
     Active Substance: SAPROPTERIN DIHYDROCHLORIDE
     Indication: PHENYLKETONURIA
     Dosage: 1300 MG, QD
     Route: 064
     Dates: start: 20171209, end: 20180215

REACTIONS (1)
  - Microcephaly [Unknown]

NARRATIVE: CASE EVENT DATE: 20180215
